FAERS Safety Report 24264862 (Version 1)
Quarter: 2024Q3

REPORT INFORMATION
  Report Type: Spontaneous
  Country: IT (occurrence: IT)
  Receive Date: 20240829
  Receipt Date: 20240829
  Transmission Date: 20241017
  Serious: Yes (Hospitalization)
  Sender: ROCHE
  Company Number: IT-ROCHE-10000068353

PATIENT
  Age: 56 Year
  Sex: Male

DRUGS (1)
  1. OCRELIZUMAB [Suspect]
     Active Substance: OCRELIZUMAB
     Indication: Primary progressive multiple sclerosis
     Route: 065

REACTIONS (2)
  - Pneumonia [Recovered/Resolved]
  - Bacterial sepsis [Recovered/Resolved]

NARRATIVE: CASE EVENT DATE: 20240426
